FAERS Safety Report 4358190-5 (Version None)
Quarter: 2004Q2

REPORT INFORMATION
  Report Type: 
  Country: None (occurrence: None)
  Receive Date: 20040513
  Receipt Date: 20040513
  Transmission Date: 20050107
  Serious: Yes (Life-Threatening, Hospitalization)
  Sender: FDA-Public Use
  Company Number: None

PATIENT
  Age: 45 Year
  Sex: Female
  Weight: 43.0917 kg

DRUGS (2)
  1. PAXIL [Suspect]
     Indication: DEPRESSION
     Dosage: 1 TABLET DAILY ORAL
     Route: 048
     Dates: start: 20040113, end: 20040404
  2. PAXIL [Suspect]
     Indication: DEPRESSION
     Dosage: 1 TABLET DAILY ORAL
     Route: 048
     Dates: start: 20040405, end: 20040415

REACTIONS (4)
  - CONDITION AGGRAVATED [None]
  - MOOD ALTERED [None]
  - SUICIDAL IDEATION [None]
  - SUICIDE ATTEMPT [None]
